FAERS Safety Report 6166914-X (Version None)
Quarter: 2009Q2

REPORT INFORMATION
  Report Type: 
  Country: None (occurrence: None)
  Receive Date: 20090423
  Receipt Date: 20090423
  Transmission Date: 20091009
  Serious: No
  Sender: FDA-Public Use
  Company Number: None

PATIENT
  Age: 32 Year
  Sex: Female

DRUGS (5)
  1. GEODON [Suspect]
     Dosage: 20MG, 60MG 20MG AC, 60MG HS PO
     Route: 048
     Dates: start: 20090216, end: 20090220
  2. CELEXA [Concomitant]
  3. VISTARIL [Concomitant]
  4. METOPROLOL TARTRATE [Concomitant]
  5. ZOLOFT [Concomitant]

REACTIONS (2)
  - AGITATION [None]
  - UNEVALUABLE EVENT [None]
